FAERS Safety Report 5759225-5 (Version None)
Quarter: 2008Q2

REPORT INFORMATION
  Report Type: 
  Country: None (occurrence: None)
  Receive Date: 20080604
  Receipt Date: 20080523
  Transmission Date: 20081010
  Serious: Yes (Other)
  Sender: FDA-Public Use
  Company Number: US-PFIZER INC-2008044949

PATIENT
  Sex: Male
  Weight: 136.1 kg

DRUGS (8)
  1. DILANTIN [Suspect]
     Indication: CONVULSION
  2. LOPRESSOR [Concomitant]
  3. NORVASC [Concomitant]
  4. HYDROCHLOROTHIAZIDE [Concomitant]
  5. MONOPRIL [Concomitant]
  6. LEXAPRO [Concomitant]
  7. COMBIVENT [Concomitant]
  8. LEVAQUIN [Concomitant]

REACTIONS (4)
  - CONVULSION [None]
  - NASAL CONGESTION [None]
  - RHINORRHOEA [None]
  - SNEEZING [None]
